FAERS Safety Report 12641007 (Version 1)
Quarter: 2016Q3

REPORT INFORMATION
  Report Type: Spontaneous
  Country: US (occurrence: US)
  Receive Date: 20160810
  Receipt Date: 20160810
  Transmission Date: 20161109
  Serious: No
  Sender: FDA-Public Use
  Company Number: US-GLAXOSMITHKLINE-US2016113889

PATIENT
  Age: 91 Year
  Sex: Female

DRUGS (1)
  1. VOLTAREN [Suspect]
     Active Substance: DICLOFENAC SODIUM
     Indication: OSTEOARTHRITIS
     Dosage: UNK
     Dates: start: 2015, end: 20160802

REACTIONS (5)
  - Back pain [Not Recovered/Not Resolved]
  - Arthralgia [Unknown]
  - Drug administered at inappropriate site [Unknown]
  - Drug ineffective [Unknown]
  - Wrong technique in product usage process [Unknown]
